FAERS Safety Report 11495927 (Version 1)
Quarter: 2015Q3

REPORT INFORMATION
  Report Type: Spontaneous
  Country: HU (occurrence: HU)
  Receive Date: 20150911
  Receipt Date: 20150911
  Transmission Date: 20151125
  Serious: Yes (Death, Hospitalization, Other)
  Sender: FDA-Public Use
  Company Number: HU-ACTELION-A-CH2015-123710

PATIENT
  Age: 37 Year
  Sex: Female

DRUGS (9)
  1. REVATIO [Concomitant]
     Active Substance: SILDENAFIL CITRATE
     Dosage: 20 MG, TID
     Route: 048
     Dates: start: 201006
  2. FUROSEMIDE. [Concomitant]
     Active Substance: FUROSEMIDE
     Dosage: 40 MG, QOD
  3. BRINALDIX [Concomitant]
     Dosage: 20 MG, QOD
  4. NEBILET [Concomitant]
     Active Substance: NEBIVOLOL
     Dosage: 2.5 MG, BID
     Route: 048
  5. OPSUMIT [Suspect]
     Active Substance: MACITENTAN
     Indication: PULMONARY ARTERIAL HYPERTENSION
     Dosage: 10 MG, UNK
     Route: 048
     Dates: start: 20150402, end: 20150907
  6. DETRALEX [Concomitant]
     Active Substance: DIOSMIN\HESPERIDIN
     Dosage: 1 UNK, BID
     Route: 048
  7. KALIUM CITRAT [Concomitant]
  8. VEROSPIRON [Concomitant]
     Active Substance: SPIRONOLACTONE
     Dosage: 25 MG, BID
     Route: 048
  9. PANANGIN [Concomitant]
     Active Substance: MAGNESIUM ASPARTATE\POTASSIUM ASPARTATE
     Dosage: 1 UNK, BID
     Route: 048

REACTIONS (7)
  - Clostridium difficile colitis [Fatal]
  - Disease progression [Unknown]
  - Clostridium difficile sepsis [Fatal]
  - Cardiopulmonary failure [Fatal]
  - Pulmonary arterial hypertension [Unknown]
  - Cardiac failure [Unknown]
  - Blood bilirubin increased [Unknown]

NARRATIVE: CASE EVENT DATE: 20150602
